FAERS Safety Report 10277150 (Version 2)
Quarter: 2014Q3

REPORT INFORMATION
  Report Type: Spontaneous
  Country: US (occurrence: US)
  Receive Date: 20140703
  Receipt Date: 20140814
  Transmission Date: 20150326
  Serious: Yes (Hospitalization)
  Sender: FDA-Public Use
  Company Number: US-PFIZER INC-2014184548

PATIENT
  Age: 62 Year
  Sex: Male
  Weight: 66.67 kg

DRUGS (10)
  1. RAPAMUNE [Suspect]
     Active Substance: SIROLIMUS
     Indication: POSTOPERATIVE CARE
     Dosage: UNK
     Dates: start: 201310
  2. MIDODRINE [Concomitant]
     Active Substance: MIDODRINE
     Dosage: UNK
  3. LOMOTIL [Concomitant]
     Active Substance: ATROPINE SULFATE\DIPHENOXYLATE HYDROCHLORIDE
     Dosage: UNK
  4. HYDROXYZINE [Concomitant]
     Active Substance: HYDROXYZINE\HYDROXYZINE HYDROCHLORIDE
     Dosage: UNK
  5. OXYCODONE [Concomitant]
     Active Substance: OXYCODONE
     Dosage: UNK
  6. OLANZAPINE. [Concomitant]
     Active Substance: OLANZAPINE
     Dosage: UNK
  7. FLOMAX [Concomitant]
     Active Substance: TAMSULOSIN HYDROCHLORIDE
     Dosage: UNK
  8. PROPRANOLOL [Concomitant]
     Active Substance: PROPRANOLOL\PROPRANOLOL HYDROCHLORIDE
     Dosage: UNK
  9. WARFARIN [Concomitant]
     Active Substance: WARFARIN
     Dosage: UNK
  10. OMEPRAZOLE. [Concomitant]
     Active Substance: OMEPRAZOLE
     Dosage: UNK

REACTIONS (4)
  - Urinary tract infection [Not Recovered/Not Resolved]
  - Sepsis [Recovered/Resolved]
  - Off label use [Unknown]
  - Enterococcal infection [Not Recovered/Not Resolved]

NARRATIVE: CASE EVENT DATE: 201310
